FAERS Safety Report 14155705 (Version 1)
Quarter: 2017Q4

REPORT INFORMATION
  Report Type: Spontaneous
  Country: IN (occurrence: IN)
  Receive Date: 20171103
  Receipt Date: 20171103
  Transmission Date: 20180321
  Serious: Yes (Hospitalization, Other)
  Sender: FDA-Public Use
  Company Number: IN-SUN PHARMACEUTICAL INDUSTRIES LTD-2017R1-153907

PATIENT
  Age: 61 Year
  Sex: Female

DRUGS (9)
  1. AZORAN (AZATHIOPRINE) [Suspect]
     Active Substance: AZATHIOPRINE
     Indication: RHEUMATOID ARTHRITIS
     Dosage: 50 MG, BID
     Route: 065
  2. WYSOLONE [Suspect]
     Active Substance: PREDNISOLONE
     Indication: INTERSTITIAL LUNG DISEASE
     Dosage: UNK
     Route: 065
  3. SULFASALAZINE. [Suspect]
     Active Substance: SULFASALAZINE
     Indication: IMMUNOSUPPRESSION
     Route: 065
  4. AZORAN (AZATHIOPRINE) [Suspect]
     Active Substance: AZATHIOPRINE
     Indication: FATIGUE
  5. HYDROCHLOROTHIAZIDE. [Suspect]
     Active Substance: HYDROCHLOROTHIAZIDE
     Indication: IMMUNOSUPPRESSION
     Dosage: 200 MG, QD
     Route: 065
  6. AZORAN (AZATHIOPRINE) [Suspect]
     Active Substance: AZATHIOPRINE
     Indication: ARTHRALGIA
     Dosage: HALF TABLET OF 50MG AZORAN
     Route: 065
  7. LEFNO [Suspect]
     Active Substance: LEFLUNOMIDE
     Indication: RHEUMATOID ARTHRITIS
     Dosage: 20 MG, QD
     Route: 065
  8. HYDROXYCHLOROQUINE [Suspect]
     Active Substance: HYDROXYCHLOROQUINE
     Indication: RHEUMATOID ARTHRITIS
     Dosage: 200 MG, QD
     Route: 065
  9. WYSOLONE [Suspect]
     Active Substance: PREDNISOLONE
     Dosage: 20 MG, QD
     Route: 065

REACTIONS (3)
  - Arthritis [Recovered/Resolved]
  - Tuberculosis [Recovered/Resolved]
  - Hepatitis [None]
